FAERS Safety Report 7530407-5 (Version None)
Quarter: 2011Q2

REPORT INFORMATION
  Report Type: 
  Country: None (occurrence: None)
  Receive Date: 20110607
  Receipt Date: 20110526
  Transmission Date: 20111010
  Serious: Yes (Death, Other)
  Sender: FDA-Public Use
  Company Number: CH-ELI_LILLY_AND_COMPANY-CH200702004481

PATIENT
  Age: 23 Year
  Sex: Male

DRUGS (52)
  1. HALDOL [Concomitant]
     Dosage: 10 MG, QD
     Route: 065
     Dates: start: 20061103, end: 20061106
  2. HALDOL [Concomitant]
     Dosage: 5 MG, QD
     Dates: start: 20061107, end: 20061118
  3. HALDOL [Concomitant]
     Dosage: 6 MG, QD
     Dates: start: 20061128, end: 20061212
  4. ENTUMIN [Concomitant]
     Dosage: 20 MG, QD
     Dates: start: 20061109, end: 20061109
  5. PERENTEROL                              /GFR/ [Concomitant]
     Dosage: 1 DF, QD
     Dates: start: 20070102, end: 20070103
  6. POTASSIUM CHLORIDE [Concomitant]
     Dosage: 40 MMOL, QD
     Dates: start: 20070101, end: 20070103
  7. ZYPREXA [Suspect]
     Dosage: 20 MG, QD
     Route: 065
     Dates: start: 20061016, end: 20061024
  8. HALDOL [Concomitant]
     Dosage: 5 MG, QD
     Dates: start: 20061230, end: 20061230
  9. HALDOL [Concomitant]
     Dosage: 5 MG, QD
     Dates: start: 20070107, end: 20070108
  10. IMOVANE [Concomitant]
     Dosage: 7.5 MG, QD
     Dates: start: 20070104, end: 20070104
  11. ACETAMINOPHEN [Concomitant]
     Dosage: UNK, OTHER
     Dates: start: 20061106, end: 20070103
  12. VOLTAREN [Concomitant]
     Dosage: UNK, OTHER
     Dates: start: 20061116, end: 20061209
  13. RESYL [Concomitant]
     Dosage: 33 MG, QD
     Dates: start: 20061216, end: 20061216
  14. QUANTALAN [Concomitant]
     Dosage: 8 G, QD
     Dates: start: 20061228, end: 20061228
  15. XYZAL [Concomitant]
     Dosage: 5 MG, QD
     Dates: start: 20070101, end: 20070101
  16. GLUCOSALINA [Concomitant]
     Dosage: UNK
     Dates: start: 20070103, end: 20070107
  17. HALDOL [Concomitant]
     Dosage: 10 MG, QD
     Dates: start: 20061119, end: 20061120
  18. HALDOL [Concomitant]
     Dosage: 3 MG, QD
     Dates: start: 20061213, end: 20061219
  19. HALDOL [Concomitant]
     Dosage: 1 MG, QD
     Dates: start: 20070106, end: 20070106
  20. RISPERDAL [Concomitant]
     Dosage: 2 MG, QD
     Route: 065
     Dates: start: 20061229, end: 20061229
  21. RISPERDAL [Concomitant]
     Dosage: 2 MG, QD
     Dates: start: 20070101, end: 20070102
  22. LORAZEPAM [Concomitant]
     Dosage: UNK UNK, PRN
     Dates: start: 20070102, end: 20070108
  23. NERVIFENE [Concomitant]
     Dosage: 20 ML, OTHER
     Dates: start: 20061205, end: 20061220
  24. PRIMOFENAC [Concomitant]
     Dosage: UNK
     Route: 061
     Dates: start: 20061129, end: 20061204
  25. ZANTAC [Concomitant]
     Dosage: 150 MG, QD
     Dates: start: 20070101, end: 20070103
  26. HALDOL [Concomitant]
     Dosage: 12.5 MG, QD
     Dates: start: 20061228, end: 20061228
  27. ZOLPIDEM [Concomitant]
     Dosage: 10 MG, OTHER
     Dates: start: 20061012, end: 20061127
  28. NOVALGIN [Concomitant]
     Dosage: UNK, OTHER
     Dates: start: 20061128, end: 20070103
  29. ZYPREXA [Suspect]
     Dosage: 40 MG, QD
     Route: 065
     Dates: start: 20061121, end: 20061224
  30. IMOVANE [Concomitant]
     Dosage: 7.5 MG, QD
     Dates: start: 20061228, end: 20061228
  31. PSYCHOPAX [Concomitant]
     Dosage: 13 MG, QD
     Dates: start: 20061012, end: 20061015
  32. SINECOD                                 /NET/ [Concomitant]
     Dosage: 30 ML, QD
     Dates: start: 20061225, end: 20061225
  33. ZYPREXA [Suspect]
     Indication: ACUTE PSYCHOSIS
     Dosage: PER NIGHT
     Route: 065
     Dates: start: 20061013, end: 20061015
  34. HALDOL [Concomitant]
     Indication: ACUTE PSYCHOSIS
     Dosage: 5 MG, QD
     Route: 065
     Dates: start: 20061031, end: 20061102
  35. IMOVANE [Concomitant]
     Dosage: 7.5 MG, QD
     Route: 065
     Dates: start: 20061221, end: 20061224
  36. LORAZEPAM [Concomitant]
     Dosage: UNK UNK, PRN
     Route: 065
     Dates: start: 20061020, end: 20061213
  37. NERVIFENE [Concomitant]
     Dosage: 40 ML, OTHER
     Dates: start: 20061128, end: 20061204
  38. ZOLPIDEM [Concomitant]
     Dosage: 10 MG, QD
     Dates: start: 20070101, end: 20070101
  39. ZYRTEC [Concomitant]
     Dosage: UNK, OTHER
     Dates: start: 20061220, end: 20061226
  40. FENISTIL                                /SCH/ [Concomitant]
     Dosage: 1 DF, QD
     Route: 061
     Dates: start: 20061219, end: 20061225
  41. ZYPREXA [Suspect]
     Dosage: 30 MG, QD
     Route: 065
     Dates: start: 20061025, end: 20061120
  42. HALDOL [Concomitant]
     Dosage: 10 MG, QD
     Dates: start: 20061231, end: 20061231
  43. IMOVANE [Concomitant]
     Dosage: 7.5 MG, QD
     Dates: start: 20070107, end: 20070107
  44. QUANTALAN [Concomitant]
     Dosage: 4 G, QD
     Dates: start: 20061229, end: 20061230
  45. NEXIUM [Concomitant]
     Dosage: 40 MG, QD
     Dates: start: 20070102, end: 20070108
  46. SODIUM CHLORIDE [Concomitant]
     Dosage: UNK, OTHER
     Dates: start: 20061228, end: 20070104
  47. HALDOL [Concomitant]
     Dosage: 8 MG, QD
     Dates: start: 20061121, end: 20061127
  48. HALDOL [Concomitant]
     Dosage: 1.5 MG, QD
     Dates: start: 20061220, end: 20061220
  49. HALDOL [Concomitant]
     Dosage: 5 MG, QD
     Dates: start: 20070101, end: 20070101
  50. NOZINAN [Concomitant]
     Dosage: UNK UNK, OTHER
     Dates: start: 20061031, end: 20061127
  51. PSYCHOPAX [Concomitant]
     Dosage: 5 MG, QD
     Dates: start: 20061103, end: 20061106
  52. SINECOD                                 /NET/ [Concomitant]
     Dosage: 60 ML, QD
     Dates: start: 20061220, end: 20061224

REACTIONS (4)
  - SUICIDAL BEHAVIOUR [None]
  - OVERDOSE [None]
  - CARDIAC ARREST [None]
  - DRUG RASH WITH EOSINOPHILIA AND SYSTEMIC SYMPTOMS [None]
